FAERS Safety Report 25517781 (Version 2)
Quarter: 2025Q3

REPORT INFORMATION
  Report Type: Report from Study
  Country: US (occurrence: US)
  Receive Date: 20250704
  Receipt Date: 20250803
  Transmission Date: 20251021
  Serious: Yes (Death, Hospitalization, Other)
  Sender: ALEXION PHARMACEUTICALS
  Company Number: US-AstraZeneca-CH-00887583A

PATIENT
  Sex: Female
  Weight: 51.701 kg

DRUGS (1)
  1. DAPAGLIFLOZIN [Suspect]
     Active Substance: DAPAGLIFLOZIN
     Route: 065

REACTIONS (5)
  - Death [Fatal]
  - Anaemia [Unknown]
  - Biliary obstruction [Unknown]
  - Acute kidney injury [Unknown]
  - Pancreatic carcinoma [Unknown]
